FAERS Safety Report 5342593-6 (Version None)
Quarter: 2007Q2

REPORT INFORMATION
  Report Type: 
  Country: None (occurrence: None)
  Receive Date: 20070601
  Receipt Date: 20061207
  Transmission Date: 20071010
  Serious: No
  Sender: FDA-Public Use
  Company Number: A0630790A

PATIENT
  Age: 83 Year
  Sex: Male

DRUGS (2)
  1. AMOXICILLIN + CLAVULANATE POTASSIUM [Suspect]
     Indication: DIVERTICULITIS
     Route: 048
     Dates: start: 20061108, end: 20061118
  2. BENICAR HCT [Concomitant]

REACTIONS (2)
  - DRY MOUTH [None]
  - TONGUE DISCOLOURATION [None]
